FAERS Safety Report 26163481 (Version 1)
Quarter: 2025Q4

REPORT INFORMATION
  Report Type: Spontaneous
  Country: PR (occurrence: None)
  Receive Date: 20251216
  Receipt Date: 20251216
  Transmission Date: 20260117
  Serious: Yes (Other)
  Sender: FDA-CTU
  Company Number: None

PATIENT
  Age: 26 Year
  Sex: Female
  Weight: 55.8 kg

DRUGS (1)
  1. SELARSDI [Suspect]
     Active Substance: USTEKINUMAB-AEKN
     Indication: Cholelithiasis
     Dosage: OTHER FREQUENCY : INDUCTION DOSE;
     Route: 042

REACTIONS (2)
  - Headache [None]
  - Chest pain [None]
